FAERS Safety Report 9234755 (Version 1)
Quarter: 2013Q2

REPORT INFORMATION
  Report Type: Spontaneous
  Country: NO (occurrence: NO)
  Receive Date: 20130416
  Receipt Date: 20130416
  Transmission Date: 20140414
  Serious: Yes (Death)
  Sender: FDA-Public Use
  Company Number: NO-AMGEN-NORSP2013021182

PATIENT
  Age: 74 Year
  Sex: Male

DRUGS (5)
  1. SOMAC [Concomitant]
  2. MEDROL                             /00049601/ [Concomitant]
  3. XGEVA [Suspect]
     Indication: METASTASES TO BONE
     Dosage: 120 MG, Q4WK
     Route: 058
     Dates: start: 20121013
  4. MORPHINE [Concomitant]
  5. PARACET                            /00020001/ [Concomitant]

REACTIONS (7)
  - Prostate cancer metastatic [Fatal]
  - Pyrexia [Unknown]
  - Condition aggravated [Unknown]
  - Influenza like illness [Unknown]
  - Pain [Unknown]
  - Asthenia [Unknown]
  - Malaise [Unknown]
